FAERS Safety Report 8189343-6 (Version None)
Quarter: 2012Q1

REPORT INFORMATION
  Report Type: 
  Country: None (occurrence: None)
  Receive Date: 20120302
  Receipt Date: 20120224
  Transmission Date: 20120608
  Serious: Yes (Hospitalization)
  Sender: FDA-Public Use
  Company Number: 7114931

PATIENT
  Age: 85 Year
  Sex: Female

DRUGS (3)
  1. LEVOTHYROXINE SODIUM [Suspect]
     Indication: PRODUCT USED FOR UNKNOWN INDICATION
     Dosage: 75 MCG (75 MCG, 1 IN 1 D) ORAL
     Route: 048
  2. PYOSTACINE (PRISTINAMYCIN) (PRISTINAMYCIN) [Suspect]
     Indication: PYELONEPHRITIS
     Dosage: 3 GM (1 GM,3 IN 1 D) ORAL
     Route: 048
     Dates: start: 20111207, end: 20111220
  3. LASILIX SPECIAL(FUROSEMIDE)(500 MG, TABLET)(FUROSEMIDE) [Suspect]
     Indication: PRODUCT USED FOR UNKNOWN INDICATION
     Dosage: 250 MG (250 MG,1 IN 1 D) ORAL
     Route: 048
     Dates: end: 20120106

REACTIONS (10)
  - BACTERIAL PYELONEPHRITIS [None]
  - DERMATITIS EXFOLIATIVE [None]
  - AGITATION [None]
  - TOXIC SKIN ERUPTION [None]
  - CITROBACTER INFECTION [None]
  - PLATELET COUNT INCREASED [None]
  - GENERAL PHYSICAL CONDITION ABNORMAL [None]
  - HYPOTENSION [None]
  - UROSEPSIS [None]
  - DEHYDRATION [None]
